FAERS Safety Report 24730310 (Version 3)
Quarter: 2025Q1

REPORT INFORMATION
  Report Type: Spontaneous
  Country: CZ (occurrence: CZ)
  Receive Date: 20241213
  Receipt Date: 20250122
  Transmission Date: 20250408
  Serious: Yes (Other)
  Sender: ASTELLAS
  Company Number: CZ-ASTELLAS-2024-AER-024462

PATIENT
  Age: 60 Year
  Sex: Female

DRUGS (10)
  1. MICAFUNGIN [Suspect]
     Active Substance: MICAFUNGIN SODIUM
     Indication: Bronchopulmonary aspergillosis
     Route: 050
  2. ISAVUCONAZONIUM SULFATE [Suspect]
     Active Substance: ISAVUCONAZONIUM SULFATE
     Indication: Bronchopulmonary aspergillosis
     Route: 050
  3. ISAVUCONAZONIUM SULFATE [Suspect]
     Active Substance: ISAVUCONAZONIUM SULFATE
     Route: 050
  4. ISAVUCONAZONIUM SULFATE [Suspect]
     Active Substance: ISAVUCONAZONIUM SULFATE
     Route: 050
  5. AMPHOTERICIN B [Suspect]
     Active Substance: AMPHOTERICIN B
     Indication: Bronchopulmonary aspergillosis
     Route: 050
  6. POSACONAZOLE [Suspect]
     Active Substance: POSACONAZOLE
     Indication: Prophylaxis
     Route: 050
  7. POSACONAZOLE [Suspect]
     Active Substance: POSACONAZOLE
     Indication: Bronchopulmonary aspergillosis
     Route: 050
  8. TERBINAFINE [Suspect]
     Active Substance: TERBINAFINE
     Indication: Bronchopulmonary aspergillosis
     Route: 050
  9. TERBINAFINE [Suspect]
     Active Substance: TERBINAFINE
     Route: 050
  10. TERBINAFINE [Suspect]
     Active Substance: TERBINAFINE
     Route: 050

REACTIONS (3)
  - Renal failure [Unknown]
  - Drug ineffective [Unknown]
  - Off label use [Unknown]
